FAERS Safety Report 6687673-8 (Version None)
Quarter: 2010Q2

REPORT INFORMATION
  Report Type: 
  Country: None (occurrence: None)
  Receive Date: 20100415
  Receipt Date: 20100406
  Transmission Date: 20101027
  Serious: Yes (Hospitalization, Other)
  Sender: FDA-Public Use
  Company Number: 2007-01790

PATIENT
  Age: 70 Year
  Sex: Male
  Weight: 71 kg

DRUGS (26)
  1. VELCADE [Suspect]
     Indication: MULTIPLE MYELOMA
     Dosage: 2.199 MG,INTRAVENOUS; 2.21 MG, INTRAVENOUS; 2.21 MG/M2, INTRAVENOUS 1.7 MG/M2,INTRAVENOUS
     Route: 042
     Dates: start: 20070305, end: 20070315
  2. VELCADE [Suspect]
     Indication: MULTIPLE MYELOMA
     Dosage: 2.199 MG,INTRAVENOUS; 2.21 MG, INTRAVENOUS; 2.21 MG/M2, INTRAVENOUS 1.7 MG/M2,INTRAVENOUS
     Route: 042
     Dates: start: 20070326, end: 20070329
  3. VELCADE [Suspect]
     Indication: MULTIPLE MYELOMA
     Dosage: 2.199 MG,INTRAVENOUS; 2.21 MG, INTRAVENOUS; 2.21 MG/M2, INTRAVENOUS 1.7 MG/M2,INTRAVENOUS
     Route: 042
     Dates: start: 20080218, end: 20080225
  4. VELCADE [Suspect]
     Indication: MULTIPLE MYELOMA
     Dosage: 2.199 MG,INTRAVENOUS; 2.21 MG, INTRAVENOUS; 2.21 MG/M2, INTRAVENOUS 1.7 MG/M2,INTRAVENOUS
     Route: 042
     Dates: start: 20080306, end: 20080710
  5. VELCADE [Suspect]
     Indication: MULTIPLE MYELOMA
     Dosage: 2.199 MG,INTRAVENOUS; 2.21 MG, INTRAVENOUS; 2.21 MG/M2, INTRAVENOUS 1.7 MG/M2,INTRAVENOUS
     Route: 042
     Dates: start: 20081116, end: 20090326
  6. VELCADE [Suspect]
     Indication: MULTIPLE MYELOMA
     Dosage: 2.199 MG,INTRAVENOUS; 2.21 MG, INTRAVENOUS; 2.21 MG/M2, INTRAVENOUS 1.7 MG/M2,INTRAVENOUS
     Route: 042
     Dates: start: 20090312, end: 20090326
  7. DEXAMETHASONE [Concomitant]
  8. LASIX [Concomitant]
  9. ALDACTONE [Concomitant]
  10. FAMOTIDINE [Concomitant]
  11. ALLOPURINOL [Concomitant]
  12. MUCOSTA (REBAMIPIDE) [Concomitant]
  13. COTRIM [Concomitant]
  14. ISODINE (POVIDONE-IODINE) [Concomitant]
  15. SEROTONE (AZASETRON HYDROCHLORIDE) [Concomitant]
  16. GLYSENNID [Concomitant]
  17. NEOPHAGEN (GLYCYRRHIZINATE POTASSIUM) [Concomitant]
  18. URSO 250 [Concomitant]
  19. ZOVIRAX	 /00587301/ (ACICLOVIR) [Concomitant]
  20. NEU-UP (NARTOGRASTIM) [Concomitant]
  21. RED BLOOD CELLS [Concomitant]
  22. CHLOR-TRIMETON [Concomitant]
  23. ITRACONAZOLE [Concomitant]
  24. VALTREX [Concomitant]
  25. METHYCOBAL (MECOBALAMIN) [Concomitant]
  26. LOXONIN (LOXOPROFEN SODIUM) [Concomitant]

REACTIONS (11)
  - ARRHYTHMIA [None]
  - BENIGN PROSTATIC HYPERPLASIA [None]
  - DIARRHOEA [None]
  - DYSURIA [None]
  - HAEMORRHAGE SUBCUTANEOUS [None]
  - HEPATIC FUNCTION ABNORMAL [None]
  - HERPES ZOSTER [None]
  - NEUROPATHY PERIPHERAL [None]
  - PLATELET COUNT DECREASED [None]
  - VARICELLA [None]
  - WHITE BLOOD CELL COUNT DECREASED [None]
